FAERS Safety Report 10213916 (Version 1)
Quarter: 2014Q2

REPORT INFORMATION
  Report Type: Spontaneous
  Country: JP (occurrence: JP)
  Receive Date: 20140603
  Receipt Date: 20140603
  Transmission Date: 20141212
  Serious: Yes (Other)
  Sender: FDA-Public Use
  Company Number: JP-MYLANLABS-2014S1012331

PATIENT
  Age: 8 Year
  Sex: Female

DRUGS (4)
  1. CARBOPLATIN [Suspect]
     Indication: HEPATOBLASTOMA
     Route: 041
  2. IFOMIDE [Suspect]
     Indication: HEPATOBLASTOMA
     Route: 041
  3. PIRARUBICIN [Suspect]
     Indication: HEPATOBLASTOMA
     Route: 041
  4. ETOPOSIDE [Suspect]
     Indication: HEPATOBLASTOMA
     Route: 041

REACTIONS (1)
  - Blood gonadotrophin increased [Unknown]
